FAERS Safety Report 6645961-5 (Version None)
Quarter: 2010Q1

REPORT INFORMATION
  Report Type: 
  Country: None (occurrence: None)
  Receive Date: 20100323
  Receipt Date: 20100323
  Transmission Date: 20100710
  Serious: Yes (Hospitalization, Other)
  Sender: FDA-Public Use
  Company Number: PHHO2006HU20573

PATIENT
  Sex: Female
  Weight: 55.4 kg

DRUGS (6)
  1. ACLASTA/ZOLEDRONATE T29581+A+SOLINJ [Suspect]
     Indication: OSTEOPOROSIS POSTMENOPAUSAL
     Dosage: 5 MG ONCE A YEAR
     Route: 042
     Dates: start: 20051205
  2. CALCIUM [Concomitant]
     Indication: OSTEOPOROSIS POSTMENOPAUSAL
  3. VITAMIN D [Concomitant]
     Indication: OSTEOPOROSIS POSTMENOPAUSAL
  4. CHINOTAL [Concomitant]
     Indication: CEREBROSCLEROSIS
     Dosage: 600 MG
     Route: 048
  5. NOOTROPIL [Concomitant]
     Indication: CEREBROSCLEROSIS
     Dosage: 800 MG
     Route: 048
     Dates: start: 20020101
  6. ZOLOFT [Concomitant]
     Indication: DEPRESSION
     Dosage: 50 MG
     Route: 048

REACTIONS (3)
  - CHOLELITHIASIS [None]
  - IRON DEFICIENCY ANAEMIA [None]
  - RENAL CYST [None]
